FAERS Safety Report 12376591 (Version 2)
Quarter: 2016Q2

REPORT INFORMATION
  Report Type: Report from Study
  Country: US (occurrence: US)
  Receive Date: 20160517
  Receipt Date: 20160517
  Transmission Date: 20160815
  Serious: No
  Sender: FDA-Public Use
  Company Number: US-MALLINCKRODT-T201502509

PATIENT
  Age: 36 Year
  Sex: Female

DRUGS (2)
  1. REPOSITORY CORTICOTROPIN INJECTION [Suspect]
     Active Substance: CORTICOTROPIN
     Dosage: 80 UNITS PER DAY
     Route: 065
     Dates: start: 20140523, end: 201406
  2. REPOSITORY CORTICOTROPIN INJECTION [Suspect]
     Active Substance: CORTICOTROPIN
     Indication: RELAPSING-REMITTING MULTIPLE SCLEROSIS
     Dosage: 80 UNITS PER DAY
     Route: 065
     Dates: start: 20130622, end: 20130702

REACTIONS (8)
  - Asthma [Unknown]
  - Fluid retention [Unknown]
  - Insomnia [Unknown]
  - Hyperglycaemia [Unknown]
  - Headache [Unknown]
  - Mood swings [Unknown]
  - Anxiety [Unknown]
  - Hyperhidrosis [Unknown]
